FAERS Safety Report 11624400 (Version 2)
Quarter: 2016Q1

REPORT INFORMATION
  Report Type: Spontaneous
  Country: JP (occurrence: JP)
  Receive Date: 20151013
  Receipt Date: 20160203
  Transmission Date: 20160525
  Serious: Yes (Death)
  Sender: FDA-Public Use
  Company Number: JP-HOSPIRA-3031915

PATIENT
  Age: 38 Year
  Sex: Male

DRUGS (2)
  1. CONTOMIN                           /00011902/ [Suspect]
     Active Substance: CHLORPROMAZINE HYDROCHLORIDE
     Indication: HICCUPS
  2. PRECEDEX [Suspect]
     Active Substance: DEXMEDETOMIDINE HYDROCHLORIDE
     Indication: INDUCTION OF ANAESTHESIA
     Route: 065

REACTIONS (4)
  - Hiccups [Unknown]
  - Sepsis [Fatal]
  - Ventricular fibrillation [Fatal]
  - Neuroleptic malignant syndrome [Fatal]
